FAERS Safety Report 5023768-2 (Version None)
Quarter: 2006Q2

REPORT INFORMATION
  Report Type: 
  Country: None (occurrence: None)
  Receive Date: 20060606
  Receipt Date: 20060523
  Transmission Date: 20061013
  Serious: Yes (Other)
  Sender: FDA-Public Use
  Company Number: US-2006-013144

PATIENT
  Sex: 0

DRUGS (1)
  1. BETASERON [Suspect]

REACTIONS (1)
  - RENAL FAILURE ACUTE [None]
